FAERS Safety Report 25171752 (Version 1)
Quarter: 2025Q2

REPORT INFORMATION
  Report Type: Other
  Country: FR (occurrence: FR)
  Receive Date: 20250408
  Receipt Date: 20250408
  Transmission Date: 20250716
  Serious: Yes (Hospitalization)
  Sender: ZYDUS PHARM
  Company Number: None

PATIENT

DRUGS (10)
  1. TRAMADOL [Suspect]
     Active Substance: TRAMADOL
     Indication: Product used for unknown indication
     Route: 065
  2. BUPIVACAINE HYDROCHLORIDE [Suspect]
     Active Substance: BUPIVACAINE HYDROCHLORIDE
     Indication: Hysterectomy
     Route: 042
     Dates: start: 20201118, end: 20201118
  3. CISATRACURIUM [Suspect]
     Active Substance: CISATRACURIUM
     Indication: Cholecystectomy
     Route: 042
     Dates: start: 20240707, end: 20240707
  4. CODEINE [Suspect]
     Active Substance: CODEINE
     Indication: Pain
     Route: 048
  5. DROPERIDOL [Suspect]
     Active Substance: DROPERIDOL
     Indication: Prophylaxis of nausea and vomiting
     Route: 042
     Dates: start: 20240710, end: 20240710
  6. KETAMINE HYDROCHLORIDE [Suspect]
     Active Substance: KETAMINE HYDROCHLORIDE
     Indication: Cholecystectomy
     Route: 042
     Dates: start: 20240710, end: 20240710
  7. NEFOPAM HYDROCHLORIDE [Suspect]
     Active Substance: NEFOPAM HYDROCHLORIDE
     Indication: Postoperative analgesia
     Route: 048
     Dates: start: 20240710, end: 20240710
  8. PROPOFOL [Suspect]
     Active Substance: PROPOFOL
     Indication: Cholecystectomy
     Route: 065
     Dates: start: 20240710, end: 20240710
  9. SUFENTA [Suspect]
     Active Substance: SUFENTANIL CITRATE
     Indication: Hysterectomy
     Route: 042
     Dates: start: 20201118, end: 20201118
  10. XYLOCAINE WITH EPINEPHRINE [Suspect]
     Active Substance: EPINEPHRINE BITARTRATE\LIDOCAINE HYDROCHLORIDE
     Indication: Cholecystectomy
     Route: 042
     Dates: start: 20240710, end: 20240710

REACTIONS (5)
  - Hypoaesthesia [Not Recovered/Not Resolved]
  - Loss of consciousness [Not Recovered/Not Resolved]
  - Asthenia [Not Recovered/Not Resolved]
  - Dizziness [Not Recovered/Not Resolved]
  - Hypotension [Not Recovered/Not Resolved]

NARRATIVE: CASE EVENT DATE: 20100101
